FAERS Safety Report 18512275 (Version 1)
Quarter: 2020Q4

REPORT INFORMATION
  Report Type: Spontaneous
  Country: US (occurrence: US)
  Receive Date: 20201117
  Receipt Date: 20201117
  Transmission Date: 20210114
  Serious: Yes (Other)
  Sender: FDA-Public Use
  Company Number: US-PURDUE PHARMA-USA-2020-0177266

PATIENT
  Sex: Male

DRUGS (1)
  1. DILAUDID [Suspect]
     Active Substance: HYDROMORPHONE HYDROCHLORIDE
     Indication: PRODUCT USED FOR UNKNOWN INDICATION
     Route: 048

REACTIONS (6)
  - Suicide attempt [Unknown]
  - Drug abuse [Recovered/Resolved]
  - Euphoric mood [Unknown]
  - Suicidal ideation [Unknown]
  - Loss of consciousness [Unknown]
  - Presyncope [Unknown]
